FAERS Safety Report 19216563 (Version 1)
Quarter: 2021Q2

REPORT INFORMATION
  Report Type: Spontaneous
  Country: US (occurrence: US)
  Receive Date: 20210505
  Receipt Date: 20210505
  Transmission Date: 20210717
  Serious: No
  Sender: FDA-Public Use
  Company Number: None

PATIENT
  Age: 78 Year
  Sex: Male
  Weight: 67.59 kg

DRUGS (1)
  1. BUPRENORPHINE (BUPRENORPHINE 15MCG/HR PATCH) [Suspect]
     Active Substance: BUPRENORPHINE
     Indication: PAIN
     Route: 061
     Dates: start: 20200323, end: 20200607

REACTIONS (2)
  - Erythema multiforme [None]
  - Rash [None]

NARRATIVE: CASE EVENT DATE: 20200608
